FAERS Safety Report 8437436-8 (Version None)
Quarter: 2012Q2

REPORT INFORMATION
  Report Type: 
  Country: None (occurrence: None)
  Receive Date: 20120614
  Receipt Date: 20120322
  Transmission Date: 20120825
  Serious: No
  Sender: FDA-Public Use
  Company Number: US-AMGEN-USASP2012006785

PATIENT
  Age: 60 Year
  Sex: Female

DRUGS (17)
  1. METOPROLOL TARTRATE [Concomitant]
     Dosage: UNK
  2. XANAX [Concomitant]
     Dosage: UNK
  3. MULTI-VITAMIN [Concomitant]
     Dosage: UNK
  4. METFORMIN HCL [Concomitant]
     Dosage: UNK
  5. COUMADIN [Concomitant]
     Dosage: UNK
  6. VITAMIN B6 [Concomitant]
     Dosage: UNK
  7. VITAMIN B-12 [Concomitant]
     Dosage: UNK
  8. CELEBREX [Concomitant]
     Dosage: UNK
  9. VENTOLIN [Concomitant]
     Dosage: UNK
  10. SIMVASTATIN [Concomitant]
     Dosage: UNK
  11. OMEPRAZOLE [Concomitant]
     Dosage: UNK
  12. CALCIUM CARBONATE [Concomitant]
     Dosage: UNK
  13. LEVEMIR [Concomitant]
     Dosage: UNK
  14. PROLIA [Suspect]
     Indication: PRODUCT USED FOR UNKNOWN INDICATION
     Dosage: 60 MG, UNK
     Dates: start: 20120201
  15. BENICAR [Concomitant]
     Dosage: UNK
  16. LASIX [Concomitant]
     Dosage: UNK
  17. VALPROIC ACID [Concomitant]
     Dosage: UNK

REACTIONS (1)
  - WRONG DRUG ADMINISTERED [None]
